FAERS Safety Report 8920764 (Version 2)
Quarter: 2012Q4

REPORT INFORMATION
  Report Type: 
  Country: NL (occurrence: NL)
  Receive Date: 20121121
  Receipt Date: 20121219
  Transmission Date: 20130627
  Serious: Yes (Other)
  Sender: FDA-Public Use
  Company Number: NL-WATSON-2012-19803

PATIENT
  Age: 5 Year
  Sex: Female

DRUGS (2)
  1. IPRATROPIUM [Suspect]
     Indication: ASTHMA
     Dosage: 20 mcg/dose up to 4x/day
     Route: 055
  2. SALBUTAMOL (UNKNOWN) [Suspect]
     Indication: ASTHMA
     Dosage: 100 mcg/dose prn
     Route: 055

REACTIONS (2)
  - Urinary hesitation [Recovered/Resolved]
  - Residual urine volume [Recovered/Resolved]
